FAERS Safety Report 8391358-X (Version None)
Quarter: 2012Q2

REPORT INFORMATION
  Report Type: 
  Country: None (occurrence: None)
  Receive Date: 20120529
  Receipt Date: 20120430
  Transmission Date: 20120825
  Serious: No
  Sender: FDA-Public Use
  Company Number: US-JNJFOC-20120201823

PATIENT
  Sex: Female
  Weight: 50.8 kg

DRUGS (4)
  1. INVEGA [Suspect]
     Route: 048
     Dates: start: 20120101
  2. CITALOPRAM [Concomitant]
     Indication: ANXIETY
     Route: 048
     Dates: start: 20111114
  3. INVEGA [Suspect]
     Indication: SCHIZOPHRENIA
     Route: 048
     Dates: start: 20111114, end: 20120101
  4. CITALOPRAM [Concomitant]
     Indication: DEPRESSION
     Route: 048
     Dates: start: 20111114

REACTIONS (1)
  - DRUG INEFFECTIVE [None]
